FAERS Safety Report 6279255-7 (Version None)
Quarter: 2009Q3

REPORT INFORMATION
  Report Type: 
  Country: None (occurrence: None)
  Receive Date: 20090717
  Receipt Date: 20090717
  Transmission Date: 20100115
  Serious: Yes (Death)
  Sender: FDA-Public Use
  Company Number: None

PATIENT
  Age: 62 Year
  Sex: Male
  Weight: 77.1115 kg

DRUGS (3)
  1. EFFEXOR [Suspect]
     Indication: ANXIETY
     Dosage: 1 TABLET ONCE PER DAY PO
     Route: 048
     Dates: start: 20070320, end: 20070322
  2. EFFEXOR [Suspect]
     Indication: DEPRESSION
     Dosage: 1 TABLET ONCE PER DAY PO
     Route: 048
     Dates: start: 20070320, end: 20070322
  3. EFFEXOR [Suspect]
     Indication: PARANOIA
     Dosage: 1 TABLET ONCE PER DAY PO
     Route: 048
     Dates: start: 20070320, end: 20070322

REACTIONS (2)
  - COMPLETED SUICIDE [None]
  - UNEVALUABLE EVENT [None]
